FAERS Safety Report 5519876-X (Version None)
Quarter: 2007Q4

REPORT INFORMATION
  Report Type: 
  Country: None (occurrence: None)
  Receive Date: 20071116
  Receipt Date: 20071003
  Transmission Date: 20080405
  Serious: No
  Sender: FDA-Public Use
  Company Number: A0685911A

PATIENT
  Age: 72 Year
  Sex: Female

DRUGS (2)
  1. COREG CR [Suspect]
     Indication: HEART RATE DECREASED
     Route: 048
     Dates: start: 20070801, end: 20070901
  2. BLOOD PRESSURE MEDICATION [Concomitant]

REACTIONS (2)
  - DRUG INEFFECTIVE [None]
  - NERVOUSNESS [None]
